FAERS Safety Report 8132171-8 (Version None)
Quarter: 2012Q1

REPORT INFORMATION
  Report Type: 
  Country: None (occurrence: None)
  Receive Date: 20120213
  Receipt Date: 20120202
  Transmission Date: 20120608
  Serious: Yes (Death, Hospitalization)
  Sender: FDA-Public Use
  Company Number: US-BAXTER-2011BH039452

PATIENT
  Sex: Female

DRUGS (1)
  1. DIANEAL [Suspect]
     Indication: PERITONEAL DIALYSIS
     Route: 033
     Dates: end: 20111205

REACTIONS (7)
  - TOXICITY TO VARIOUS AGENTS [None]
  - ULTRAFILTRATION FAILURE [None]
  - CARDIAC FAILURE [None]
  - RESPIRATORY FAILURE [None]
  - PNEUMONIA [None]
  - MYOCARDIAL INFARCTION [None]
  - SEPSIS [None]
